FAERS Safety Report 23653972 (Version 1)
Quarter: 2024Q1

REPORT INFORMATION
  Report Type: Spontaneous
  Country: DE (occurrence: DE)
  Receive Date: 20240320
  Receipt Date: 20240320
  Transmission Date: 20240409
  Serious: Yes (Life-Threatening, Hospitalization, Other)
  Sender: FDA-Public Use
  Company Number: None

PATIENT
  Age: 72 Year
  Sex: Male
  Weight: 100 kg

DRUGS (9)
  1. CAPECITABINE [Suspect]
     Active Substance: CAPECITABINE
     Indication: Rectal cancer
     Dosage: 4-0-4
     Route: 048
     Dates: start: 20240222, end: 20240225
  2. PANTOPRAZOLE SODIUM [Concomitant]
     Active Substance: PANTOPRAZOLE SODIUM
     Indication: Product used for unknown indication
     Dosage: 1-0-0
     Route: 048
  3. Dexamethason 8mg [Concomitant]
     Indication: Adjuvant therapy
     Dosage: UNIQUE
     Route: 042
     Dates: start: 20240222, end: 20240222
  4. Dexamethason 8mg [Concomitant]
     Indication: Rectal cancer
  5. Palonosetron 250mg [Concomitant]
     Indication: Rectal cancer
     Dosage: UNIQUE
     Route: 042
     Dates: start: 20240222, end: 20240222
  6. Palonosetron 250mg [Concomitant]
     Indication: Adjuvant therapy
  7. Anoro 55/22?g [Concomitant]
     Indication: Chronic obstructive pulmonary disease
     Dosage: 1-0-0
     Route: 055
  8. Oxaliplatin 260mg [Concomitant]
     Indication: Rectal cancer
     Dosage: UNIQUE
     Route: 042
     Dates: start: 20240222, end: 20240222
  9. Novaminsulfon 500mg Tabletten [Concomitant]
     Indication: Pain
     Dosage: AS NEEDED/ NECESSARY
     Route: 048

REACTIONS (4)
  - Acute myocardial infarction [Recovering/Resolving]
  - Atherosclerotic plaque rupture [Recovering/Resolving]
  - Arteriospasm coronary [Recovering/Resolving]
  - Chest discomfort [Unknown]

NARRATIVE: CASE EVENT DATE: 20240224
